FAERS Safety Report 20366668 (Version 1)
Quarter: 2022Q1

REPORT INFORMATION
  Report Type: Other
  Country: US (occurrence: US)
  Receive Date: 20220123
  Receipt Date: 20220123
  Transmission Date: 20220423
  Serious: Yes (Hospitalization, Disabling, Other)
  Sender: FDA-Public Use
  Company Number: US-ACORDA-ACO_170302_2021

PATIENT
  Sex: Female
  Weight: 60.3 kg

DRUGS (13)
  1. AMPYRA [Suspect]
     Active Substance: DALFAMPRIDINE
     Indication: Multiple sclerosis
     Dosage: UNK
     Dates: start: 20130101
  2. AMPYRA [Suspect]
     Active Substance: DALFAMPRIDINE
     Indication: Mobility decreased
  3. AUBAGIO [Suspect]
     Active Substance: TERIFLUNOMIDE
     Indication: Multiple sclerosis
     Dosage: 14 MILLIGRAM, QD
     Route: 048
     Dates: start: 20131118
  4. AUBAGIO [Suspect]
     Active Substance: TERIFLUNOMIDE
     Dosage: 14 MILLIGRAM, QD
     Route: 048
  5. AUBAGIO [Suspect]
     Active Substance: TERIFLUNOMIDE
     Dosage: 14 MILLIGRAM, QD
     Route: 048
  6. AUBAGIO [Suspect]
     Active Substance: TERIFLUNOMIDE
     Dosage: 14 MILLIGRAM, QD
     Route: 048
     Dates: start: 2014
  7. ATENOLOL [Concomitant]
     Active Substance: ATENOLOL
     Indication: Blood pressure measurement
     Dosage: UNK
     Route: 065
  8. OXYCODONE [Concomitant]
     Active Substance: OXYCODONE
     Indication: Spinal osteoarthritis
     Dosage: UNK
     Route: 065
  9. OXYCODONE [Concomitant]
     Active Substance: OXYCODONE
     Indication: Arthritis
  10. IBUPROFEN [Concomitant]
     Active Substance: IBUPROFEN
     Indication: Spinal osteoarthritis
     Dosage: UNK
     Route: 065
  11. IBUPROFEN [Concomitant]
     Active Substance: IBUPROFEN
     Indication: Arthritis
  12. ACETAMINOPHEN [Concomitant]
     Active Substance: ACETAMINOPHEN
     Indication: Spinal osteoarthritis
     Dosage: UNK
     Route: 065
  13. ACETAMINOPHEN [Concomitant]
     Active Substance: ACETAMINOPHEN
     Indication: Arthritis

REACTIONS (31)
  - Optic neuritis [Not Recovered/Not Resolved]
  - Visual impairment [Not Recovered/Not Resolved]
  - Infected cyst [Recovered/Resolved]
  - Orthosis user [Recovered/Resolved]
  - Localised infection [Not Recovered/Not Resolved]
  - Myelitis [Unknown]
  - Urinary tract infection [Not Recovered/Not Resolved]
  - Multiple sclerosis [Unknown]
  - Multiple sclerosis relapse [Not Recovered/Not Resolved]
  - Multiple sclerosis relapse [Recovering/Resolving]
  - Mobility decreased [Not Recovered/Not Resolved]
  - Pollakiuria [Unknown]
  - Crying [Unknown]
  - Magnetic resonance imaging spinal abnormal [Unknown]
  - Secretion discharge [Recovering/Resolving]
  - Knee deformity [Not Recovered/Not Resolved]
  - Muscle atrophy [Recovered/Resolved]
  - Blood sodium decreased [Not Recovered/Not Resolved]
  - Chest pain [Recovered/Resolved]
  - Abdominal pain [Recovered/Resolved]
  - Ear pain [Recovered/Resolved]
  - Hyperkeratosis [Not Recovered/Not Resolved]
  - Anaemia [Not Recovered/Not Resolved]
  - Eye disorder [Recovered/Resolved]
  - Vision blurred [Not Recovered/Not Resolved]
  - Gait disturbance [Unknown]
  - Back pain [Not Recovered/Not Resolved]
  - Nausea [Recovered/Resolved]
  - Paraesthesia [Unknown]
  - Urinary tract infection [Not Recovered/Not Resolved]
  - Asthenia [Not Recovered/Not Resolved]

NARRATIVE: CASE EVENT DATE: 20150101
